FAERS Safety Report 6528010-9 (Version None)
Quarter: 2009Q4

REPORT INFORMATION
  Report Type: 
  Country: None (occurrence: None)
  Receive Date: 20091222
  Receipt Date: 20090916
  Transmission Date: 20100525
  Serious: No
  Sender: FDA-Public Use
  Company Number: ALL1-2009-02786

PATIENT
  Age: 10 Year
  Sex: Male
  Weight: 45.4 kg

DRUGS (4)
  1. VYVANSE [Suspect]
     Indication: ATTENTION DEFICIT/HYPERACTIVITY DISORDER
     Dosage: 20 MG, 1X/DAY:QD, ORAL
     Route: 048
     Dates: start: 20090814, end: 20090817
  2. SINGULAIR /01362601/ (MONTELUKAST) [Concomitant]
  3. ADVAIR DISKUS 100/50 [Concomitant]
  4. ALLEGRA /01314201/ (FEXOFENADINE) [Concomitant]

REACTIONS (2)
  - HYPERACUSIS [None]
  - PHOTOPHOBIA [None]
